FAERS Safety Report 9236175 (Version 1)
Quarter: 2013Q2

REPORT INFORMATION
  Report Type: Spontaneous
  Country: FR (occurrence: FR)
  Receive Date: 20130417
  Receipt Date: 20130417
  Transmission Date: 20140414
  Serious: Yes (Other)
  Sender: FDA-Public Use
  Company Number: FR-ELI_LILLY_AND_COMPANY-FR_031203330

PATIENT
  Age: 81 Year
  Sex: Female

DRUGS (3)
  1. FLUOXETINE HYDROCHLORIDE [Suspect]
     Dosage: 20 MG, DAILY (1/D)
     Route: 048
  2. HYDROXYZINE [Concomitant]
     Dosage: 100 MG, DAILY (1/D)
  3. HYDROMORPHONE [Concomitant]
     Indication: INTERVERTEBRAL DISC DISORDER
     Dosage: 12 MG, DAILY (1/D)

REACTIONS (10)
  - Drug interaction [Recovered/Resolved]
  - Serotonin syndrome [Recovering/Resolving]
  - Incoherent [Recovering/Resolving]
  - Dyskinesia [Recovering/Resolving]
  - Tremor [Recovering/Resolving]
  - Myoclonus [Recovering/Resolving]
  - Hyperhidrosis [Recovering/Resolving]
  - Flushing [Recovering/Resolving]
  - Somnolence [Recovering/Resolving]
  - Intervertebral disc disorder [Unknown]
